FAERS Safety Report 5186561-6 (Version None)
Quarter: 2006Q4

REPORT INFORMATION
  Report Type: 
  Country: None (occurrence: None)
  Receive Date: 20061213
  Receipt Date: 20061127
  Transmission Date: 20070319
  Serious: Yes (Congenital Anomaly, Other)
  Sender: FDA-Public Use
  Company Number: 2006EU001962

PATIENT
  Sex: Female
  Weight: 1.3 kg

DRUGS (3)
  1. VESICARE [Suspect]
     Indication: DRUG USE FOR UNKNOWN INDICATION
     Dosage: 10MG, UID/QD, TRANSPLACENTAL
     Route: 064
  2. FOLIC ACID [Concomitant]
  3. CELESTONE [Concomitant]

REACTIONS (8)
  - APGAR SCORE ABNORMAL [None]
  - CAESAREAN SECTION [None]
  - DRUG EXPOSURE DURING PREGNANCY [None]
  - FOETAL GROWTH RETARDATION [None]
  - HAEMANGIOMA [None]
  - PRE-ECLAMPSIA [None]
  - PREMATURE BABY [None]
  - SMALL FOR DATES BABY [None]
